FAERS Safety Report 25929363 (Version 4)
Quarter: 2025Q4

REPORT INFORMATION
  Report Type: Spontaneous
  Country: EU (occurrence: EU)
  Receive Date: 20251016
  Receipt Date: 20251127
  Transmission Date: 20260118
  Serious: Yes (Life-Threatening, Hospitalization, Other)
  Sender: CELLTRION
  Company Number: EU-BRISTOL-MYERS SQUIBB COMPANY-2025-133507

PATIENT

DRUGS (14)
  1. RITUXIMAB [Suspect]
     Active Substance: RITUXIMAB
     Indication: Plasma cell myeloma
  2. RITUXIMAB [Suspect]
     Active Substance: RITUXIMAB
     Indication: Castleman^s disease
  3. LENALIDOMIDE [Suspect]
     Active Substance: LENALIDOMIDE
     Indication: Plasma cell myeloma
     Dosage: UNK
     Route: 065
  4. BENDAMUSTINE [Suspect]
     Active Substance: BENDAMUSTINE
     Indication: Plasma cell myeloma
     Dosage: UNK
     Route: 065
  5. BORTEZOMIB [Suspect]
     Active Substance: BORTEZOMIB
     Indication: Plasma cell myeloma
     Route: 065
  6. BORTEZOMIB [Suspect]
     Active Substance: BORTEZOMIB
     Indication: Hyperviscosity syndrome
  7. DEXAMETHASONE [Suspect]
     Active Substance: DEXAMETHASONE
     Indication: Plasma cell myeloma
     Dosage: 40 MILLIGRAM, QW (FOR THE FIRST 2 WEEKS)
     Route: 065
  8. DEXAMETHASONE [Suspect]
     Active Substance: DEXAMETHASONE
     Indication: Hyperviscosity syndrome
     Dosage: 20 MILLIGRAM, QW (REDUCED TO 20 MG AFTER TWO WEEKS)
     Route: 065
  9. DARATUMUMAB [Suspect]
     Active Substance: DARATUMUMAB
     Indication: Plasma cell myeloma refractory
     Dosage: UNK
     Route: 065
  10. DARATUMUMAB [Suspect]
     Active Substance: DARATUMUMAB
     Indication: Plasma cell myeloma
     Dosage: 1800 MILLIGRAM, QW (1X A WEEK)
     Route: 058
  11. DARATUMUMAB [Suspect]
     Active Substance: DARATUMUMAB
     Indication: Hyperviscosity syndrome
  12. VENETOCLAX [Concomitant]
     Active Substance: VENETOCLAX
     Indication: Plasma cell myeloma
     Dosage: ON DAY 4-6
     Route: 048
  13. VENETOCLAX [Concomitant]
     Active Substance: VENETOCLAX
     Indication: Plasma cell myeloma
     Dosage: AFTER DAY 6/ DAY 4-6
     Route: 048
  14. VENETOCLAX [Concomitant]
     Active Substance: VENETOCLAX
     Dosage: ON DAY 1-3
     Route: 048

REACTIONS (8)
  - Neutropenia [Unknown]
  - Acute kidney injury [Unknown]
  - Peritonitis bacterial [Unknown]
  - Pleural effusion [Unknown]
  - Ascites [Recovering/Resolving]
  - Oedema [Unknown]
  - Drug ineffective [Unknown]
  - Intentional product use issue [Unknown]
